FAERS Safety Report 9750012 (Version 2)
Quarter: 2013Q4

REPORT INFORMATION
  Report Type: Spontaneous
  Country: DE (occurrence: DE)
  Receive Date: 20131212
  Receipt Date: 20131212
  Transmission Date: 20140711
  Serious: No
  Sender: FDA-Public Use
  Company Number: DE-GILEAD-DE-CVT-090192

PATIENT
  Age: 68 Year
  Sex: Male

DRUGS (8)
  1. RANEXA [Suspect]
     Indication: ANGINA PECTORIS
     Route: 048
     Dates: start: 20090311, end: 20090319
  2. RANEXA [Interacting]
     Route: 048
     Dates: start: 20090320, end: 20090304
  3. FALITHROM [Interacting]
     Indication: ATRIAL FIBRILLATION
     Route: 048
     Dates: start: 1999
  4. IBUPROFEN [Interacting]
     Indication: BACK PAIN
     Route: 048
  5. SIMVASTATIN [Suspect]
     Indication: HYPERLIPIDAEMIA
     Route: 048
  6. BISOPROLOL                         /00802601/ [Concomitant]
     Indication: HYPERTENSION
     Route: 048
     Dates: start: 2004
  7. PENTALONG [Concomitant]
     Indication: CORONARY ARTERY DISEASE
     Route: 048
     Dates: start: 2001
  8. KINZALKOMB [Concomitant]
     Indication: HYPERTENSION
     Route: 048
     Dates: start: 2007

REACTIONS (2)
  - Conjunctival haemorrhage [Recovering/Resolving]
  - Drug interaction [Recovering/Resolving]
